FAERS Safety Report 12268922 (Version 2)
Quarter: 2016Q2

REPORT INFORMATION
  Report Type: Spontaneous
  Country: ES (occurrence: ES)
  Receive Date: 20160414
  Receipt Date: 20160422
  Transmission Date: 20160815
  Serious: Yes (Hospitalization, Other)
  Sender: FDA-Public Use
  Company Number: ES-PFIZER INC-2016207379

PATIENT
  Age: 16 Year
  Sex: Male

DRUGS (6)
  1. VFEND [Suspect]
     Active Substance: VORICONAZOLE
     Indication: PNEUMONIA FUNGAL
     Dosage: 450 MG, 2X/DAY (EVERY 12 HOURS)
     Dates: start: 20160401
  2. METHOTREXATE SODIUM. [Suspect]
     Active Substance: METHOTREXATE SODIUM
     Indication: LEUKAEMIA
     Dosage: UNK
     Dates: end: 20160330
  3. TIOGUANINE [Concomitant]
     Active Substance: THIOGUANINE ANHYDROUS
     Dosage: UNK
  4. VITAMINE D DCI [Concomitant]
     Dosage: UNK
  5. RANITIDINE. [Concomitant]
     Active Substance: RANITIDINE
     Dosage: UNK
  6. VALTREX [Concomitant]
     Active Substance: VALACYCLOVIR HYDROCHLORIDE
     Dosage: UNK

REACTIONS (4)
  - Paralysis [Recovered/Resolved]
  - Heart rate increased [Recovered/Resolved]
  - Hypoaesthesia oral [Recovered/Resolved]
  - Unresponsive to stimuli [Recovered/Resolved]

NARRATIVE: CASE EVENT DATE: 20160403
